FAERS Safety Report 23598754 (Version 1)
Quarter: 2024Q1

REPORT INFORMATION
  Report Type: Report from Study
  Country: IT (occurrence: IT)
  Receive Date: 20240306
  Receipt Date: 20240306
  Transmission Date: 20240410
  Serious: Yes (Other)
  Sender: FDA-Public Use
  Company Number: IT-CELLTRION HEALTHCARE HUNGARY KFT-2024IT002988

PATIENT
  Age: 56 Year
  Sex: Female

DRUGS (5)
  1. BENDAMUSTINE [Suspect]
     Active Substance: BENDAMUSTINE
     Indication: Follicular lymphoma
     Dosage: UNK (R-BENDA ; RTX)
     Route: 065
  2. RITUXIMAB [Suspect]
     Active Substance: RITUXIMAB
     Indication: Follicular lymphoma
     Dosage: UNK (R-BENDA ; RTX)
     Route: 065
  3. ELASOMERAN [Concomitant]
     Active Substance: ELASOMERAN
     Indication: Immunisation
     Dosage: UNK (FOLLOWED BY A SECOND MRNA-1273 VACCINE DOSE 28 DAYS LATER)
  4. ELASOMERAN [Concomitant]
     Active Substance: ELASOMERAN
     Dosage: UNK (RECEIVED AT FIRST MRNA-1273 VACCINE DOSE IN MARCH 2021 )
     Route: 065
     Dates: start: 202103
  5. ELASOMERAN [Concomitant]
     Active Substance: ELASOMERAN
     Dosage: UNK (THIRD VACCINE DOSE BETWEEN DECEMBER 2021 AND JANUARY 2022 FOR VACCINATION)
     Route: 065
     Dates: start: 202112, end: 202201

REACTIONS (2)
  - Breakthrough COVID-19 [Unknown]
  - Vaccination failure [Unknown]
